FAERS Safety Report 8718422 (Version 2)
Quarter: 2012Q4

REPORT INFORMATION
  Report Type: 
  Country: US (occurrence: US)
  Receive Date: 20120810
  Receipt Date: 20120911
  Transmission Date: 20130627
  Serious: No
  Sender: FDA-Public Use
  Company Number: US-ASTRAZENECA-2012SE48789

PATIENT
  Age: 62 Year
  Sex: Female

DRUGS (2)
  1. SYMBICORT PMDI [Suspect]
     Dosage: ONE PUFF DAILY
     Route: 055
  2. SYMBICORT PMDI [Suspect]
     Dosage: TWO PUFF
     Route: 055

REACTIONS (2)
  - Dyspnoea [Unknown]
  - Intentional drug misuse [Unknown]
